FAERS Safety Report 16805383 (Version 1)
Quarter: 2019Q3

REPORT INFORMATION
  Report Type: Spontaneous
  Country: NZ (occurrence: NZ)
  Receive Date: 20190913
  Receipt Date: 20190913
  Transmission Date: 20191005
  Serious: Yes (Other)
  Sender: FDA-Public Use
  Company Number: NZ-REGENERON PHARMACEUTICALS, INC.-2019-53340

PATIENT

DRUGS (1)
  1. EYLEA [Suspect]
     Active Substance: AFLIBERCEPT
     Indication: AGE-RELATED MACULAR DEGENERATION
     Dosage: BOTH EYES, TOTAL OF 17 DOSES OF EYLEA, LAST EYLEA DOSE WAS RECEIVED ON 27-AUG-2019
     Route: 031

REACTIONS (2)
  - Blindness [Unknown]
  - Endophthalmitis [Recovering/Resolving]

NARRATIVE: CASE EVENT DATE: 20190830
